FAERS Safety Report 19898456 (Version 1)
Quarter: 2021Q3

REPORT INFORMATION
  Report Type: Spontaneous
  Country: DE (occurrence: DE)
  Receive Date: 20210929
  Receipt Date: 20210929
  Transmission Date: 20211014
  Serious: Yes (Death)
  Sender: FDA-Public Use
  Company Number: DE-ACCORD-240021

PATIENT
  Age: 5 Day
  Sex: Male
  Weight: 2.6 kg

DRUGS (6)
  1. PYRIDOXINE [Suspect]
     Active Substance: PYRIDOXINE
     Indication: NEONATAL EPILEPTIC SEIZURE
     Dosage: DAILY DOSE: 200 MG MILLGRAM(S) EVERY DAYS 2 SEPARATED DOSES
     Route: 042
     Dates: start: 20210105
  2. CHLORAL HYDRATE/CHLORAL HYDRATE DERIVATIVE [Concomitant]
     Active Substance: CHLORAL HYDRATE
     Indication: SEDATION
     Route: 042
  3. DIAZEPAM. [Concomitant]
     Active Substance: DIAZEPAM
     Indication: SEDATION
     Route: 042
  4. VALPROIC ACID. [Concomitant]
     Active Substance: VALPROIC ACID
     Indication: NEONATAL EPILEPTIC SEIZURE
     Route: 042
     Dates: start: 20210108
  5. PHENOBARBITAL. [Suspect]
     Active Substance: PHENOBARBITAL
     Indication: NEONATAL EPILEPTIC SEIZURE
     Dosage: 13?25 MG
     Route: 042
     Dates: start: 20210105, end: 20210108
  6. LEVETIRACETAM. [Suspect]
     Active Substance: LEVETIRACETAM
     Indication: NEONATAL EPILEPTIC SEIZURE
     Dosage: 25 MG?100 MG
     Route: 042
     Dates: start: 20210105, end: 20210108

REACTIONS (1)
  - Necrotising enterocolitis neonatal [Fatal]

NARRATIVE: CASE EVENT DATE: 20210109
